FAERS Safety Report 11126164 (Version 1)
Quarter: 2015Q2

REPORT INFORMATION
  Report Type: Spontaneous
  Country: FR (occurrence: FR)
  Receive Date: 20150520
  Receipt Date: 20150520
  Transmission Date: 20150821
  Serious: Yes (Other)
  Sender: FDA-Public Use
  Company Number: FR-ASTRAZENECA-2015SE45912

PATIENT
  Age: 21355 Day
  Sex: Male

DRUGS (2)
  1. INEXIUM [Suspect]
     Active Substance: ESOMEPRAZOLE
     Route: 048
     Dates: start: 20150304, end: 20150305
  2. APRANAX [Suspect]
     Active Substance: NAPROXEN
     Indication: BACK PAIN
     Dosage: NON-AZ PRODUCT
     Route: 048
     Dates: start: 20150304, end: 20150305

REACTIONS (6)
  - Dysphonia [Unknown]
  - Angioedema [Recovered/Resolved]
  - Generalised erythema [Recovered/Resolved]
  - Chest discomfort [Unknown]
  - Pruritus [Recovered/Resolved]
  - Dyspnoea [Unknown]

NARRATIVE: CASE EVENT DATE: 20150305
